FAERS Safety Report 7649879-0 (Version None)
Quarter: 2011Q3

REPORT INFORMATION
  Report Type: 
  Country: None (occurrence: None)
  Receive Date: 20110713
  Receipt Date: 20110601
  Transmission Date: 20111222
  Serious: Yes (Other)
  Sender: FDA-Public Use
  Company Number: 2011P1006921

PATIENT
  Age: 30 Year
  Sex: Female
  Weight: 68.0396 kg

DRUGS (6)
  1. XANAX [Concomitant]
  2. LAMOTRIGINE [Suspect]
     Indication: HEADACHE
     Dosage: 100 MG;QD;PO ; 150 MG;QD;PO
     Route: 048
     Dates: end: 20110525
  3. LAMOTRIGINE [Suspect]
     Indication: ANXIETY
     Dosage: 100 MG;QD;PO ; 150 MG;QD;PO
     Route: 048
     Dates: end: 20110525
  4. LAMOTRIGINE [Suspect]
     Indication: HEADACHE
     Dosage: 100 MG;QD;PO ; 150 MG;QD;PO
     Route: 048
     Dates: start: 20110526, end: 20110528
  5. LAMOTRIGINE [Suspect]
     Indication: ANXIETY
     Dosage: 100 MG;QD;PO ; 150 MG;QD;PO
     Route: 048
     Dates: start: 20110526, end: 20110528
  6. HYDROXYZINE [Suspect]
     Indication: HYPERSENSITIVITY
     Dates: start: 20110601

REACTIONS (10)
  - DRY SKIN [None]
  - HYPERSENSITIVITY [None]
  - HYPERVENTILATION [None]
  - ANXIETY [None]
  - OFF LABEL USE [None]
  - VISION BLURRED [None]
  - DIZZINESS [None]
  - SKIN BURNING SENSATION [None]
  - FATIGUE [None]
  - SEBORRHOEA [None]
